FAERS Safety Report 8389275-4 (Version None)
Quarter: 2012Q2

REPORT INFORMATION
  Report Type: 
  Country: None (occurrence: None)
  Receive Date: 20120528
  Receipt Date: 20120516
  Transmission Date: 20120825
  Serious: Yes (Hospitalization)
  Sender: FDA-Public Use
  Company Number: US-BRISTOL-MYERS SQUIBB COMPANY-16599250

PATIENT
  Age: 36 Year
  Sex: Female
  Weight: 66 kg

DRUGS (1)
  1. TRIAMCINOLONE ACETONIDE [Suspect]
     Indication: PSORIASIS
     Dates: start: 20010910

REACTIONS (5)
  - ULCER [None]
  - DIVERTICULITIS [None]
  - DYSPEPSIA [None]
  - RECTAL HAEMORRHAGE [None]
  - ABDOMINAL DISCOMFORT [None]
